FAERS Safety Report 12118264 (Version 1)
Quarter: 2016Q1

REPORT INFORMATION
  Report Type: Spontaneous
  Country: US (occurrence: None)
  Receive Date: 20160224
  Receipt Date: 20160224
  Transmission Date: 20160526
  Serious: Yes (Other)
  Sender: FDA-Public Use
  Company Number: None

PATIENT
  Age: 34 Year
  Sex: Male
  Weight: 79.83 kg

DRUGS (2)
  1. DEPAKOTE [Suspect]
     Active Substance: DIVALPROEX SODIUM
     Indication: SEIZURE
     Route: 048
     Dates: start: 1988, end: 2015
  2. VALPROIC ACID SYRUP 250 MG/5 ML [Suspect]
     Active Substance: VALPROIC ACID

REACTIONS (3)
  - Pruritus [None]
  - Rash [None]
  - Bone pain [None]

NARRATIVE: CASE EVENT DATE: 2012
